FAERS Safety Report 5601745-8 (Version None)
Quarter: 2008Q1

REPORT INFORMATION
  Report Type: 
  Country: None (occurrence: None)
  Receive Date: 20080124
  Receipt Date: 20080114
  Transmission Date: 20080703
  Serious: Yes (Other)
  Sender: FDA-Public Use
  Company Number: FR-ABBOTT-08P-056-0433720-00

PATIENT
  Sex: Female
  Weight: 74 kg

DRUGS (6)
  1. KALETRA [Suspect]
     Indication: HIV INFECTION
     Route: 048
     Dates: start: 20070808
  2. VALPROMIDE [Suspect]
     Indication: BIPOLAR DISORDER
     Route: 048
     Dates: start: 20061001, end: 20070804
  3. VALPROMIDE [Suspect]
  4. EFAVIRENZ [Suspect]
     Indication: HIV INFECTION
     Route: 048
     Dates: start: 20070328, end: 20070808
  5. TRUVADA [Suspect]
     Indication: HIV INFECTION
     Route: 048
     Dates: start: 20070328, end: 20070808
  6. LAMIVUDINE + ZIDOVUDINE [Suspect]
     Indication: HIV INFECTION
     Route: 048
     Dates: start: 20070808

REACTIONS (3)
  - CYTOLYTIC HEPATITIS [None]
  - MANIA [None]
  - PRE-ECLAMPSIA [None]
